FAERS Safety Report 6214074-9 (Version None)
Quarter: 2009Q2

REPORT INFORMATION
  Report Type: 
  Country: None (occurrence: None)
  Receive Date: 20090604
  Receipt Date: 20090528
  Transmission Date: 20091009
  Serious: Yes (Other)
  Sender: FDA-Public Use
  Company Number: CA-JNJFOC-20090506963

PATIENT
  Age: 59 Year
  Sex: Female

DRUGS (3)
  1. REMINYL [Suspect]
     Indication: MEMORY IMPAIRMENT
     Route: 065
  2. CITALOPRAM HYDROBROMIDE [Concomitant]
     Indication: DRUG USE FOR UNKNOWN INDICATION
     Route: 065
  3. TRAMADOL HCL [Concomitant]
     Route: 065

REACTIONS (3)
  - BEDRIDDEN [None]
  - CARDIAC DISORDER [None]
  - DIZZINESS [None]
